FAERS Safety Report 25705923 (Version 1)
Quarter: 2025Q3

REPORT INFORMATION
  Report Type: Spontaneous
  Country: GB (occurrence: GB)
  Receive Date: 20250820
  Receipt Date: 20250820
  Transmission Date: 20251021
  Serious: Yes (Life-Threatening, Other)
  Sender: ELI LILLY AND COMPANY
  Company Number: None

PATIENT
  Age: 41 Year
  Sex: Male
  Weight: 92 kg

DRUGS (2)
  1. MOUNJARO [Suspect]
     Active Substance: TIRZEPATIDE
     Indication: Weight control
     Route: 065
     Dates: start: 20250810
  2. LAMICTAL [Concomitant]
     Active Substance: LAMOTRIGINE
     Indication: Epilepsy
     Route: 065

REACTIONS (2)
  - Epilepsy [Recovered/Resolved with Sequelae]
  - Blood phosphorus decreased [Unknown]

NARRATIVE: CASE EVENT DATE: 20250811
